FAERS Safety Report 10138074 (Version 1)
Quarter: 2014Q2

REPORT INFORMATION
  Report Type: Report from Study
  Country: JP (occurrence: JP)
  Receive Date: 20140429
  Receipt Date: 20140429
  Transmission Date: 20141212
  Serious: Yes (Hospitalization)
  Sender: FDA-Public Use
  Company Number: JP-B.I. PHARMACEUTICALS,INC./RIDGEFIELD-2014-BI-18102NB

PATIENT
  Age: 69 Year
  Sex: Male
  Weight: 80 kg

DRUGS (7)
  1. PRAZAXA [Suspect]
     Indication: CEREBROVASCULAR ACCIDENT PROPHYLAXIS
     Dosage: 220 MG
     Route: 048
     Dates: start: 20120413, end: 20131203
  2. PRAZAXA [Suspect]
     Indication: CEREBROVASCULAR ACCIDENT PROPHYLAXIS
     Dosage: 220 MG
     Route: 048
     Dates: start: 20131205
  3. PREMINENT [Concomitant]
     Route: 048
  4. ATELEC [Concomitant]
     Dosage: 20 MG
     Route: 048
  5. CRESTOR [Concomitant]
     Dosage: 2.5 MG
     Route: 048
  6. PRONON [Concomitant]
     Indication: ATRIAL FIBRILLATION
     Dosage: 450 MG
     Route: 048
  7. TAKEPRON [Concomitant]
     Dosage: 15 MG
     Route: 048

REACTIONS (4)
  - Large intestine polyp [Recovered/Resolved]
  - Diabetes mellitus [Not Recovered/Not Resolved]
  - Anaemia [Unknown]
  - Occult blood positive [Unknown]
